FAERS Safety Report 19696953 (Version 1)
Quarter: 2021Q3

REPORT INFORMATION
  Report Type: Spontaneous
  Country: IT (occurrence: IT)
  Receive Date: 20210813
  Receipt Date: 20210813
  Transmission Date: 20211014
  Serious: Yes (Other)
  Sender: FDA-Public Use
  Company Number: IT-ACCORD-235407

PATIENT
  Age: 49 Year
  Sex: Female
  Weight: 49 kg

DRUGS (3)
  1. PACLITAXEL ACCORD HEALTHCARE [Suspect]
     Active Substance: PACLITAXEL
     Indication: BREAST CANCER
     Dosage: 6 MG / ML
     Route: 042
     Dates: start: 20210722, end: 20210722
  2. AVASTIN [Concomitant]
     Active Substance: BEVACIZUMAB
  3. XGEVA [Concomitant]
     Active Substance: DENOSUMAB
     Dosage: 120 MG SOLUTION FOR INJECTION

REACTIONS (4)
  - Flushing [Unknown]
  - Dyspnoea [Recovered/Resolved]
  - Erythema [Recovered/Resolved]
  - Pruritus [Recovered/Resolved]

NARRATIVE: CASE EVENT DATE: 20210722
